FAERS Safety Report 15781243 (Version 1)
Quarter: 2019Q1

REPORT INFORMATION
  Report Type: Spontaneous
  Country: US (occurrence: US)
  Receive Date: 20190102
  Receipt Date: 20190102
  Transmission Date: 20190417
  Serious: No
  Sender: FDA-Public Use
  Company Number: US-SA-2018SA397799

PATIENT
  Sex: Female

DRUGS (1)
  1. COLESEVELAM HYDROCHLORIDE. [Suspect]
     Active Substance: COLESEVELAM HYDROCHLORIDE
     Indication: PRODUCT USED FOR UNKNOWN INDICATION
     Dosage: 625 MG
     Route: 048
     Dates: start: 201812

REACTIONS (2)
  - Off label use [Unknown]
  - No adverse event [Unknown]
